FAERS Safety Report 8952474 (Version 1)
Quarter: 2012Q4

REPORT INFORMATION
  Report Type: 
  Country: ZA (occurrence: ZA)
  Receive Date: 20121205
  Receipt Date: 20121205
  Transmission Date: 20130627
  Serious: Yes (Hospitalization, Other)
  Sender: FDA-Public Use
  Company Number: ZA-BAYER-2012-120331

PATIENT
  Age: 36 Year
  Sex: Female
  Weight: 55 kg

DRUGS (1)
  1. YASMIN [Suspect]
     Dosage: UNK
     Route: 048
     Dates: start: 2009, end: 201210

REACTIONS (9)
  - Pulmonary embolism [None]
  - Dyspnoea [None]
  - Cough [None]
  - Haemoptysis [None]
  - Chest pain [None]
  - Headache [None]
  - Nausea [None]
  - Vomiting [None]
  - Pyrexia [None]
